FAERS Safety Report 5161002-3 (Version None)
Quarter: 2006Q4

REPORT INFORMATION
  Report Type: 
  Country: None (occurrence: None)
  Receive Date: 20061130
  Receipt Date: 20061120
  Transmission Date: 20070319
  Serious: Yes (Hospitalization)
  Sender: FDA-Public Use
  Company Number: DE-AMGEN-UK200925

PATIENT
  Age: 68 Year
  Sex: Female

DRUGS (2)
  1. KINERET [Suspect]
     Indication: RHEUMATOID ARTHRITIS
     Route: 065
     Dates: start: 20060101
  2. PREDNISOLONE [Concomitant]
     Route: 065

REACTIONS (2)
  - PYREXIA [None]
  - RHEUMATOID ARTHRITIS [None]
